FAERS Safety Report 11635668 (Version 9)
Quarter: 2022Q4

REPORT INFORMATION
  Report Type: Spontaneous
  Country: US (occurrence: US)
  Receive Date: 20151016
  Receipt Date: 20221006
  Transmission Date: 20230113
  Serious: Yes (Hospitalization, Other)
  Sender: FDA-Public Use
  Company Number: US-PFIZER INC-2015341707

PATIENT
  Age: 63 Year
  Sex: Female
  Weight: 97.506 kg

DRUGS (19)
  1. XELJANZ [Suspect]
     Active Substance: TOFACITINIB CITRATE
     Indication: Rheumatoid arthritis
     Dosage: 5 MG, 2X/DAY (1 TABLET BID)
     Route: 048
     Dates: start: 20150710
  2. XELJANZ [Suspect]
     Active Substance: TOFACITINIB CITRATE
     Dosage: 5 MG, CYCLIC (TWICE A DAY ON MONDAY, WEDNESDAY, AND FRIDAY)
  3. XELJANZ [Suspect]
     Active Substance: TOFACITINIB CITRATE
     Dosage: 5 MG, CYCLIC (ON SUNDAY, TUESDAY, THURSDAY, AND SATURDAY THE PATIENT IS TO TAKE 1 TABLET ONCE A DAY)
  4. NORTRIPTYLINE [Concomitant]
     Active Substance: NORTRIPTYLINE
     Dosage: 75 MG, UNK
  5. METHYLPREDNISOLONE [Concomitant]
     Active Substance: METHYLPREDNISOLONE
     Dosage: 4 MG, UNK
  6. HYDROXYCHLOROQUINE [Concomitant]
     Active Substance: HYDROXYCHLOROQUINE
     Dosage: 200 MG, UNK
  7. SULINDAC [Concomitant]
     Active Substance: SULINDAC
     Indication: Rheumatoid arthritis
     Dosage: 150MG 1 TABLET WITH FOOD ONCE DAILY
  8. MAGNESIUM OXIDE [Concomitant]
     Active Substance: MAGNESIUM OXIDE
     Dosage: 400 MG, UNK
  9. OMEPRAZOLE [Concomitant]
     Active Substance: OMEPRAZOLE
     Dosage: 20 MG, UNK
  10. BISOPROLOL FUMARATE\HYDROCHLOROTHIAZIDE [Concomitant]
     Active Substance: BISOPROLOL FUMARATE\HYDROCHLOROTHIAZIDE
     Dosage: 5 MG, UNK
  11. METHOTREXATE [Concomitant]
     Active Substance: METHOTREXATE
     Dosage: UNK (0.3)
  12. ACETAMINOPHEN [Concomitant]
     Active Substance: ACETAMINOPHEN
     Dosage: 500MG TABLET 1 TABLET AS NEEDED EVERY 6 HOURS
  13. PAMELOR [Concomitant]
     Active Substance: NORTRIPTYLINE HYDROCHLORIDE
     Dosage: 75 MG, 1X/DAY (1 CAPSULE AT EDTIME)
  14. PLAQUENIL [Concomitant]
     Active Substance: HYDROXYCHLOROQUINE SULFATE
     Indication: Rheumatoid arthritis
     Dosage: 200 MG TABLET 11/2 TABLETS WITH FOOD OR MILK ONCE A DAY
     Route: 048
  15. METHOTREXATE SODIUM [Concomitant]
     Active Substance: METHOTREXATE SODIUM
     Indication: Rheumatoid arthritis
     Dosage: 25 MG/ML SOLUTION INJECT AT 0.5 ML, WEEKLY
     Route: 030
  16. NORCO [Concomitant]
     Active Substance: ACETAMINOPHEN\HYDROCODONE BITARTRATE
     Dosage: 5-325 MG TABLET 1 TABLET AS NEEDED EVERY 6 HOURS
  17. PREDNISONE [Concomitant]
     Active Substance: PREDNISONE
     Dosage: 5 MG TABLET 1 TABLET WITH FOOD OR MILK ONCE A DAY
  18. PRILOSEC [Concomitant]
     Active Substance: OMEPRAZOLE MAGNESIUM
     Dosage: 20 MG CAPSULE DELAYED RELEASE 1 CAPSULE ONCE A DAY
  19. MEDROL [Concomitant]
     Active Substance: METHYLPREDNISOLONE
     Indication: Rheumatoid arthritis
     Dosage: 4 MG TABLET 1.5 TABLETS AS DIRECTED ONCE DAILY

REACTIONS (9)
  - Joint swelling [Not Recovered/Not Resolved]
  - Infection [Recovered/Resolved]
  - Limb injury [Unknown]
  - Fibula fracture [Recovering/Resolving]
  - Intentional product misuse [Unknown]
  - Peripheral swelling [Recovered/Resolved]
  - Arthralgia [Unknown]
  - Sciatica [Unknown]
  - Musculoskeletal stiffness [Unknown]

NARRATIVE: CASE EVENT DATE: 20151002
